FAERS Safety Report 19015426 (Version 1)
Quarter: 2021Q1

REPORT INFORMATION
  Report Type: Spontaneous
  Country: US (occurrence: US)
  Receive Date: 20210316
  Receipt Date: 20210316
  Transmission Date: 20210420
  Serious: Yes (Death, Other)
  Sender: FDA-Public Use
  Company Number: US-AMGEN-USASP2021038432

PATIENT

DRUGS (7)
  1. PEGFILGRASTIM [Suspect]
     Active Substance: PEGFILGRASTIM
     Indication: PROPHYLAXIS
     Dosage: UNK (ON DAY 2)
     Route: 065
  2. PREDNISONE. [Concomitant]
     Active Substance: PREDNISONE
     Dosage: 100 MILLIGRAM, CYCLICAL (ON DAY 1?5)
  3. LENALIDOMIDE [Concomitant]
     Active Substance: LENALIDOMIDE
     Dosage: 25 MILLIGRAM (DAY 1?10 OF 21 DAY CYCLE)
  4. DOXORUBICIN [Concomitant]
     Active Substance: DOXORUBICIN
     Dosage: 50 MILLIGRAM/SQ. METER, CYCLICAL
  5. CYCLOPHOSPHAMIDE. [Concomitant]
     Active Substance: CYCLOPHOSPHAMIDE
     Dosage: 750 MILLIGRAM/SQ. METER, CYCLICAL
  6. VINCRISTINE [Concomitant]
     Active Substance: VINCRISTINE
     Dosage: 1.4 MILLIGRAM/SQ. METER, CYCLICAL (ON DAY 1)
  7. RITUXIMAB. [Concomitant]
     Active Substance: RITUXIMAB
     Dosage: 375 MILLIGRAM/SQ. METER, CYCLICAL

REACTIONS (12)
  - Diffuse large B-cell lymphoma [Fatal]
  - Disease progression [Unknown]
  - Refusal of treatment by patient [Unknown]
  - Febrile neutropenia [Unknown]
  - Neutropenia [Unknown]
  - Adverse event [Unknown]
  - Treatment noncompliance [Unknown]
  - Acute myeloid leukaemia [Fatal]
  - Thrombocytopenia [Unknown]
  - Anaemia [Unknown]
  - Malignant melanoma [Fatal]
  - Therapeutic product effect incomplete [Unknown]
